FAERS Safety Report 11996124 (Version 1)
Quarter: 2016Q1

REPORT INFORMATION
  Report Type: Spontaneous
  Country: US (occurrence: US)
  Receive Date: 20160203
  Receipt Date: 20160203
  Transmission Date: 20160526
  Serious: No
  Sender: FDA-Public Use
  Company Number: US-GALDERMA-US15001029

PATIENT
  Sex: Female

DRUGS (2)
  1. UNSPECIFIED LOTION [Concomitant]
     Active Substance: UNSPECIFIED INGREDIENT
     Route: 061
  2. EPIDUO [Suspect]
     Active Substance: ADAPALENE\BENZOYL PEROXIDE
     Indication: RASH
     Dosage: 0.1%/2.5%
     Route: 061

REACTIONS (4)
  - Skin irritation [Recovered/Resolved]
  - Skin exfoliation [Recovered/Resolved]
  - Skin burning sensation [Recovered/Resolved]
  - Pain of skin [Recovered/Resolved]
